FAERS Safety Report 9187452 (Version 1)
Quarter: 2013Q1

REPORT INFORMATION
  Report Type: Spontaneous
  Country: KZ (occurrence: KZ)
  Receive Date: 20130325
  Receipt Date: 20130325
  Transmission Date: 20140127
  Serious: Yes (Death)
  Sender: FDA-Public Use
  Company Number: KZ-009507513-1212KAZ003180

PATIENT
  Age: 41 Year
  Sex: Female

DRUGS (4)
  1. SINGULAIR [Suspect]
     Dosage: 10 MG IN THE EVENING, QD
     Route: 048
  2. AERIUS [Suspect]
     Dosage: 5 MG IN THE EVENING, QD
     Route: 048
  3. AVAMYS [Suspect]
     Dosage: 1 INJECTION 2 TIMES
     Route: 045
  4. CROMOLYN SODIUM [Suspect]
     Dosage: 1 INJECTION 4 TIMES
     Route: 045

REACTIONS (1)
  - Death [Fatal]
